FAERS Safety Report 10404065 (Version 1)
Quarter: 2014Q3

REPORT INFORMATION
  Report Type: Spontaneous
  Country: FR (occurrence: FR)
  Receive Date: 20140821
  Receipt Date: 20140821
  Transmission Date: 20150326
  Serious: Yes (Death, Other)
  Sender: FDA-Public Use
  Company Number: FR-EMCURE-000793

PATIENT
  Age: 70 Year
  Sex: Male

DRUGS (4)
  1. ETOPOPHOS [Suspect]
     Active Substance: ETOPOSIDE PHOSPHATE
     Indication: B-CELL LYMPHOMA
     Dosage: DAILY DOSE:358 MG
     Route: 042
     Dates: start: 20131126, end: 20131129
  2. ALKERAN [Suspect]
     Active Substance: MELPHALAN
     Indication: B-CELL LYMPHOMA
     Route: 042
     Dates: start: 20131130, end: 20131130
  3. BICNU [Suspect]
     Active Substance: CARMUSTINE
     Indication: B-CELL LYMPHOMA
     Route: 042
     Dates: start: 20131125, end: 20131125
  4. ARACYTINE [Suspect]
     Active Substance: CYTARABINE
     Indication: B-CELL LYMPHOMA
     Dosage: DAILY DOSE: 358 MG
     Route: 042
     Dates: start: 20131126, end: 20131129

REACTIONS (12)
  - Bone marrow failure [Unknown]
  - Cardiogenic shock [Fatal]
  - Pneumothorax [None]
  - Disease recurrence [None]
  - Right ventricular dysfunction [Unknown]
  - Pseudomonas test positive [None]
  - Acute respiratory distress syndrome [Fatal]
  - Pulmonary fibrosis [Fatal]
  - Mitral valve incompetence [None]
  - Lymphoma [None]
  - Hypercapnic coma [None]
  - Drug ineffective [None]

NARRATIVE: CASE EVENT DATE: 20131204
